FAERS Safety Report 7446192-1 (Version None)
Quarter: 2011Q2

REPORT INFORMATION
  Report Type: 
  Country: None (occurrence: None)
  Receive Date: 20110429
  Receipt Date: 20110425
  Transmission Date: 20111010
  Serious: Yes (Hospitalization, Other)
  Sender: FDA-Public Use
  Company Number: CA-US-EMD SERONO, INC.-7010641

PATIENT
  Sex: Female

DRUGS (2)
  1. TAPAZOLE [Concomitant]
     Indication: HYPERTHYROIDISM
  2. REBIF [Suspect]
     Indication: RELAPSING-REMITTING MULTIPLE SCLEROSIS
     Route: 058
     Dates: start: 20061203

REACTIONS (1)
  - THYROID CANCER [None]
